FAERS Safety Report 10776082 (Version 1)
Quarter: 2015Q1

REPORT INFORMATION
  Report Type: Spontaneous
  Country: US (occurrence: None)
  Receive Date: 20150205
  Receipt Date: 20150205
  Transmission Date: 20150721
  Serious: No
  Sender: FDA-Public Use
  Company Number: None

PATIENT

DRUGS (1)
  1. LUGOL [Suspect]
     Active Substance: IODINE\POTASSIUM IODIDE
     Dosage: DOSAGE FORM: SOLUTION, SIZE: 8 ML?

REACTIONS (1)
  - Physical product label issue [None]
